FAERS Safety Report 20531923 (Version 1)
Quarter: 2022Q1

REPORT INFORMATION
  Report Type: Spontaneous
  Country: US (occurrence: None)
  Receive Date: 20220228
  Receipt Date: 20220228
  Transmission Date: 20220423
  Serious: Yes (Hospitalization, Disabling)
  Sender: FDA-Public Use
  Company Number: None

PATIENT
  Age: 75 Year
  Sex: Male

DRUGS (9)
  1. CAPECITABINE [Suspect]
     Active Substance: CAPECITABINE
     Dosage: FREQUENCY : TWICE A DAY;?
     Route: 048
     Dates: start: 20210916
  2. PROCHLORPERAZINE 10MG [Concomitant]
  3. DILTIAZEM [Concomitant]
     Active Substance: DILTIAZEM
  4. ELIQUIS [Concomitant]
     Active Substance: APIXABAN
  5. GABAPENTIN [Concomitant]
     Active Substance: GABAPENTIN
  6. NORCO [Concomitant]
     Active Substance: ACETAMINOPHEN\HYDROCODONE BITARTRATE
  7. OMEPRAZOLE [Concomitant]
     Active Substance: OMEPRAZOLE
  8. ONDANSERTRON ODT 8MG [Concomitant]
  9. TEMAZEPAM [Concomitant]
     Active Substance: TEMAZEPAM

REACTIONS (2)
  - Pneumonia [None]
  - Throat cancer [None]

NARRATIVE: CASE EVENT DATE: 20220221
